FAERS Safety Report 13185824 (Version 3)
Quarter: 2017Q4

REPORT INFORMATION
  Report Type: Report from Study
  Country: GB (occurrence: GB)
  Receive Date: 20170203
  Receipt Date: 20171011
  Transmission Date: 20180320
  Serious: Yes (Other)
  Sender: FDA-Public Use
  Company Number: PHHY2017GB013685

PATIENT
  Age: 22 Year
  Sex: Female

DRUGS (3)
  1. BRIMONIDINE [Suspect]
     Active Substance: BRIMONIDINE TARTRATE
     Indication: EYE PAIN
     Route: 065
  2. DORZOLAMIDE [Suspect]
     Active Substance: DORZOLAMIDE
     Indication: INTRAOCULAR PRESSURE INCREASED
     Dosage: UNK
     Route: 065
  3. TIMOLOL. [Suspect]
     Active Substance: TIMOLOL
     Indication: PRODUCT USED FOR UNKNOWN INDICATION
     Route: 065

REACTIONS (10)
  - Pyrexia [Unknown]
  - Retinal aneurysm [Unknown]
  - Vision blurred [Unknown]
  - Visual impairment [Unknown]
  - Intraocular pressure increased [Unknown]
  - Eye disorder [Unknown]
  - Drug intolerance [Unknown]
  - Retinal telangiectasia [Unknown]
  - Pupillary block [Unknown]
  - Strabismus [Unknown]
